FAERS Safety Report 9070567 (Version 2)
Quarter: 2013Q1

REPORT INFORMATION
  Report Type: Spontaneous
  Country: FR (occurrence: FR)
  Receive Date: 20130215
  Receipt Date: 20130325
  Transmission Date: 20140127
  Serious: Yes (Hospitalization)
  Sender: FDA-Public Use
  Company Number: FR-B.I. PHARMACEUTICALS,INC./RIDGEFIELD-2013-FF-00477FF

PATIENT
  Age: 87 Year
  Sex: Female
  Weight: 61 kg

DRUGS (4)
  1. PRADAXA [Suspect]
     Indication: ATRIAL FIBRILLATION
     Dosage: 150 MG
     Route: 048
     Dates: start: 201212, end: 20130117
  2. LASILIX [Concomitant]
     Indication: CARDIAC DISORDER
     Dosage: 60 MG
     Route: 048
  3. LEVOTHYROX [Concomitant]
     Indication: HYPOTHYROIDISM
     Dosage: 100 MCG
     Route: 048
  4. TEMERIT [Concomitant]
     Indication: ATRIAL FIBRILLATION
     Dosage: 2.5 MG
     Route: 048

REACTIONS (2)
  - Confusional state [Recovered/Resolved]
  - Fall [Recovered/Resolved]
